FAERS Safety Report 18264030 (Version 4)
Quarter: 2020Q4

REPORT INFORMATION
  Report Type: Spontaneous
  Country: CH (occurrence: CH)
  Receive Date: 20200914
  Receipt Date: 20201119
  Transmission Date: 20210113
  Serious: Yes (Hospitalization, Other)
  Sender: FDA-Public Use
  Company Number: CH-BRISTOL-MYERS SQUIBB COMPANY-BMS-2020-074150

PATIENT
  Age: 65 Year
  Sex: Female

DRUGS (2)
  1. ORENCIA [Suspect]
     Active Substance: ABATACEPT
     Indication: RHEUMATOID ARTHRITIS
     Dosage: 125 MILLIGRAM, QWK
     Route: 058
     Dates: start: 20110301, end: 20200629
  2. CELECOXIB. [Concomitant]
     Active Substance: CELECOXIB
     Indication: PAIN
     Dosage: 200
     Route: 048
     Dates: start: 20160518, end: 20200901

REACTIONS (7)
  - Sinusitis [Unknown]
  - Normochromic normocytic anaemia [Unknown]
  - Pleural effusion [Unknown]
  - Hodgkin^s disease nodular sclerosis stage IV [Unknown]
  - Metastasis [Unknown]
  - Lymphoma [Recovering/Resolving]
  - Platelet count increased [Unknown]

NARRATIVE: CASE EVENT DATE: 20200619
